FAERS Safety Report 15402096 (Version 1)
Quarter: 2018Q3

REPORT INFORMATION
  Report Type: Spontaneous
  Country: CA (occurrence: CA)
  Receive Date: 20180919
  Receipt Date: 20180919
  Transmission Date: 20181010
  Serious: Yes (Hospitalization, Other)
  Sender: FDA-Public Use
  Company Number: CA-GLAXOSMITHKLINE-CA2018GSK166965

PATIENT
  Age: 35 Year
  Sex: Male

DRUGS (12)
  1. TRIMETHOPRIM AND SULFAMETHOXAZOLE [Suspect]
     Active Substance: SULFAMETHOXAZOLE\TRIMETHOPRIM
     Indication: PRODUCT USED FOR UNKNOWN INDICATION
     Dosage: UNK UNK, BID
  2. SPIRIVA [Suspect]
     Active Substance: TIOTROPIUM BROMIDE MONOHYDRATE
     Indication: PRODUCT USED FOR UNKNOWN INDICATION
     Dosage: UNK
  3. AMOXICILLIN. [Suspect]
     Active Substance: AMOXICILLIN
     Indication: PRODUCT USED FOR UNKNOWN INDICATION
     Dosage: UNK
  4. NYSTATIN. [Suspect]
     Active Substance: NYSTATIN
     Indication: PRODUCT USED FOR UNKNOWN INDICATION
     Dosage: 40 ML, 1D
  5. PREDNISONE. [Suspect]
     Active Substance: PREDNISONE
     Indication: PRODUCT USED FOR UNKNOWN INDICATION
     Dosage: UNK
  6. SYMBICORT [Suspect]
     Active Substance: BUDESONIDE\FORMOTEROL FUMARATE DIHYDRATE
     Indication: PRODUCT USED FOR UNKNOWN INDICATION
     Dosage: UNK UNK, BID
  7. TUDORZA PRESSAIR [Suspect]
     Active Substance: ACLIDINIUM BROMIDE
     Indication: PRODUCT USED FOR UNKNOWN INDICATION
     Dosage: UNK
  8. AMOXICILLIN AND CLAVULANATE POTASSIUM [Suspect]
     Active Substance: AMOXICILLIN\CLAVULANATE POTASSIUM
     Indication: PRODUCT USED FOR UNKNOWN INDICATION
     Dosage: UNK
  9. SALBUTAMOL SULPHATE [Suspect]
     Active Substance: ALBUTEROL SULFATE
     Indication: PRODUCT USED FOR UNKNOWN INDICATION
     Dosage: UNK
  10. NUCALA [Suspect]
     Active Substance: MEPOLIZUMAB
     Indication: ASTHMA
     Dosage: 100 MG, 1D
     Route: 042
  11. BECLOMETHASONE DIPROPIONATE [Suspect]
     Active Substance: BECLOMETHASONE DIPROPIONATE
     Indication: PRODUCT USED FOR UNKNOWN INDICATION
     Dosage: UNK UNK, 1D
  12. PANTOPRAZOLE [Suspect]
     Active Substance: PANTOPRAZOLE
     Indication: PRODUCT USED FOR UNKNOWN INDICATION
     Dosage: UNK, 1D

REACTIONS (23)
  - General physical health deterioration [Recovered/Resolved]
  - Quality of life decreased [Recovered/Resolved]
  - Pulmonary congestion [Recovered/Resolved]
  - Decreased activity [Recovered/Resolved]
  - Malaise [Recovered/Resolved]
  - Mood swings [Recovered/Resolved]
  - Oxygen saturation decreased [Recovered/Resolved]
  - Psychiatric symptom [Recovered/Resolved]
  - Depression [Recovered/Resolved]
  - Personal relationship issue [Recovered/Resolved]
  - Sinusitis [Recovered/Resolved]
  - Weight increased [Recovered/Resolved]
  - Cognitive disorder [Recovered/Resolved]
  - Asthenia [Recovered/Resolved]
  - Dyspnoea [Recovered/Resolved]
  - Irritability [Recovered/Resolved]
  - Sleep disorder [Recovered/Resolved]
  - Therapeutic response decreased [Recovered/Resolved]
  - Asthma [Recovered/Resolved]
  - Fatigue [Recovered/Resolved]
  - Immune system disorder [Recovered/Resolved]
  - Oral candidiasis [Recovered/Resolved]
  - Productive cough [Recovered/Resolved]
